FAERS Safety Report 5254867-8 (Version None)
Quarter: 2007Q1

REPORT INFORMATION
  Report Type: 
  Country: None (occurrence: None)
  Receive Date: 20070305
  Receipt Date: 20070222
  Transmission Date: 20070707
  Serious: Yes (Hospitalization)
  Sender: FDA-Public Use
  Company Number: FR-BRISTOL-MYERS SQUIBB COMPANY-13633615

PATIENT
  Age: 49 Year
  Sex: Male

DRUGS (4)
  1. REYATAZ [Suspect]
     Indication: HIV INFECTION
     Route: 048
  2. NORVIR [Concomitant]
     Indication: HIV INFECTION
     Dates: start: 20060101
  3. SUSTIVA [Concomitant]
     Indication: HIV INFECTION
     Dates: start: 20060101
  4. TRUVADA [Concomitant]
     Indication: HIV INFECTION
     Dates: start: 20061110

REACTIONS (2)
  - NEPHROLITHIASIS [None]
  - RENAL COLIC [None]
